FAERS Safety Report 7052752-2 (Version None)
Quarter: 2010Q4

REPORT INFORMATION
  Report Type: 
  Country: None (occurrence: None)
  Receive Date: 20101012
  Receipt Date: 20101005
  Transmission Date: 20110411
  Serious: Yes (Death, Other)
  Sender: FDA-Public Use
  Company Number: 2010SP053042

PATIENT
  Age: 55 Year
  Sex: Male

DRUGS (8)
  1. SAPHRIS [Suspect]
     Indication: SCHIZOPHRENIA
     Dosage: 5 MG;SL, 10 MG;SL
     Route: 060
     Dates: start: 20100714
  2. NEXIUM [Concomitant]
  3. XANAX [Concomitant]
  4. PAXIL [Concomitant]
  5. SYNTHROID [Concomitant]
  6. LORCET-HD [Concomitant]
  7. NYSTATIN [Concomitant]
  8. VALPROIC ACID [Concomitant]

REACTIONS (2)
  - COMPLETED SUICIDE [None]
  - HALLUCINATION [None]
